FAERS Safety Report 20865031 (Version 1)
Quarter: 2022Q2

REPORT INFORMATION
  Report Type: Spontaneous
  Country: US (occurrence: US)
  Receive Date: 20220524
  Receipt Date: 20220524
  Transmission Date: 20220721
  Serious: No
  Sender: FDA-Public Use
  Company Number: US-TEVA-2022-US-2033666

PATIENT
  Age: 42 Year
  Sex: Female

DRUGS (4)
  1. LORAZEPAM [Suspect]
     Active Substance: LORAZEPAM
     Indication: Anxiety
     Dosage: TOTAL DAILY DOSE OF 6 MG
  2. LORAZEPAM [Suspect]
     Active Substance: LORAZEPAM
     Dosage: TOTAL DAILY DOSE OF 6 MG
     Dates: start: 2004
  3. LORAZEPAM [Suspect]
     Active Substance: LORAZEPAM
     Indication: Anxiety
     Route: 065
     Dates: start: 2004
  4. ZOLOFT [Suspect]
     Active Substance: SERTRALINE HYDROCHLORIDE
     Route: 065

REACTIONS (6)
  - Drug intolerance [Unknown]
  - Adverse drug reaction [Unknown]
  - Feeling abnormal [Unknown]
  - Anxiety [Unknown]
  - Drug ineffective [Unknown]
  - Wrong technique in product usage process [Unknown]
